FAERS Safety Report 5022464-5 (Version None)
Quarter: 2006Q2

REPORT INFORMATION
  Report Type: 
  Country: None (occurrence: None)
  Receive Date: 20060609
  Receipt Date: 20060531
  Transmission Date: 20061013
  Serious: Yes (Other)
  Sender: FDA-Public Use
  Company Number: US-ROCHE-450339

PATIENT
  Age: 52 Year
  Sex: Male
  Weight: 74.8 kg

DRUGS (3)
  1. PEGASYS [Suspect]
     Route: 058
     Dates: start: 20060404, end: 20060523
  2. COPEGUS [Suspect]
     Dosage: DOSAGE REGIMEN 3 AM/ 2PM
     Route: 048
     Dates: start: 20060404, end: 20060523
  3. IBUPROFEN [Concomitant]
     Indication: BACK PAIN
     Route: 048
     Dates: start: 20010615

REACTIONS (9)
  - ASTHENIA [None]
  - CHEST PAIN [None]
  - DYSPNOEA [None]
  - FEELING HOT [None]
  - INFLUENZA LIKE ILLNESS [None]
  - LOSS OF CONSCIOUSNESS [None]
  - MUSCLE SPASMS [None]
  - NAUSEA [None]
  - VERTIGO [None]
